FAERS Safety Report 6817144-7 (Version None)
Quarter: 2010Q3

REPORT INFORMATION
  Report Type: 
  Country: None (occurrence: None)
  Receive Date: 20100706
  Receipt Date: 20100621
  Transmission Date: 20110219
  Serious: Yes (Other)
  Sender: FDA-Public Use
  Company Number: US-BAYER-201015564NA

PATIENT
  Age: 22 Year
  Sex: Female

DRUGS (19)
  1. YASMIN [Suspect]
     Indication: CONTRACEPTION
     Route: 048
     Dates: start: 20021210, end: 20031022
  2. YAZ [Suspect]
     Indication: CONTRACEPTION
     Dosage: DISCREPANT DATES
     Route: 048
  3. ESTROSTEP FE [Concomitant]
     Dates: start: 20031229
  4. MEPERIDINE/PROMETHAZINE [Concomitant]
     Dosage: MEPERIDINE 50 MG /PROMETHAZINE 25 MG
     Route: 048
     Dates: start: 20040129
  5. FLEXERIL [Concomitant]
     Dates: start: 20040921
  6. NAPROXEN [Concomitant]
     Dates: start: 20040921
  7. CLARINEX [Concomitant]
     Dates: start: 20041006
  8. ZITHROMAX [Concomitant]
     Dates: start: 20030501
  9. ULTRACET [Concomitant]
     Dates: start: 20030129
  10. CIPRO [Concomitant]
     Dates: start: 20030129
  11. FAMVIR [Concomitant]
     Dates: start: 20030129
  12. NITROFURANTOIN MONOHYDRATE/MACROCRYSTALS [Concomitant]
     Dates: start: 20041210
  13. CLINDAMYCIN [Concomitant]
     Dates: start: 20040129
  14. PROPOXPHENE-N/ APAP [Concomitant]
     Dosage: PROPOXYPHENE NAPSYLATE W 100 /ACETAMINOPHENE 650
     Dates: start: 20040310
  15. LEVAQUIN [Concomitant]
     Dates: start: 20031217
  16. BENZONATATE [Concomitant]
     Dates: start: 20031217
  17. SKELAXIN [Concomitant]
     Dates: start: 20030917
  18. PSEUDOVENT DM [Concomitant]
     Dates: start: 20030917
  19. KETOPROFEN [Concomitant]
     Dates: start: 20041224

REACTIONS (4)
  - CHOLECYSTITIS [None]
  - MALAISE [None]
  - PYREXIA [None]
  - RASH [None]
